FAERS Safety Report 8183986-1 (Version None)
Quarter: 2012Q1

REPORT INFORMATION
  Report Type: 
  Country: None (occurrence: None)
  Receive Date: 20120305
  Receipt Date: 20120227
  Transmission Date: 20120608
  Serious: Yes (Hospitalization)
  Sender: FDA-Public Use
  Company Number: JP-TEVA-324956ISR

PATIENT
  Age: 25 Year
  Sex: Male

DRUGS (8)
  1. CYCLOSPORINE [Suspect]
     Dosage: 200 MG/DAY
     Route: 065
  2. METHYLPREDNISOLONE [Suspect]
     Indication: IMMUNOSUPPRESSION
     Route: 065
  3. AZATHIOPRINE [Suspect]
     Indication: IMMUNOSUPPRESSION
     Route: 065
  4. GUSPERIMUS [Suspect]
     Indication: IMMUNOSUPPRESSION
     Route: 065
  5. CISPLATIN [Suspect]
     Indication: TRANSITIONAL CELL CARCINOMA
     Dosage: SINGLE DOSAGE OF CISPLATIN REDUCED FROM ORIGINAL 70 MG/M2 TO 35 MG/M2; FOR TWO COURSES
     Route: 065
  6. METHYLPREDNISOLONE [Suspect]
     Dosage: 8 MG/DAY
     Route: 065
  7. CYCLOSPORINE [Suspect]
     Indication: IMMUNOSUPPRESSION
     Route: 065
  8. GEMCITABINE [Suspect]
     Indication: TRANSITIONAL CELL CARCINOMA
     Dosage: FOR TWO COURSES
     Route: 065

REACTIONS (3)
  - GRANULOCYTOPENIA [None]
  - TRANSITIONAL CELL CARCINOMA [None]
  - ANAEMIA [None]
